FAERS Safety Report 9339048 (Version 3)
Quarter: 2018Q2

REPORT INFORMATION
  Report Type: Report from Study
  Country: CA (occurrence: CA)
  Receive Date: 20130610
  Receipt Date: 20180516
  Transmission Date: 20180711
  Serious: Yes (Other)
  Sender: FDA-Public Use
  Company Number: CA-ROCHE-1230633

PATIENT
  Sex: Female
  Weight: 79.5 kg

DRUGS (7)
  1. RHEUMACIN [Suspect]
     Active Substance: INDOMETHACIN
     Indication: PRODUCT USED FOR UNKNOWN INDICATION
     Dosage: DISCONTINUED (TRADE NAME REPORTED AS RHEUMACIN)
     Route: 065
  2. DIPHENHYDRAMINE HCL [Concomitant]
     Active Substance: DIPHENHYDRAMINE HYDROCHLORIDE
     Indication: PREMEDICATION
     Route: 048
     Dates: end: 20110614
  3. ACETAMINOPHEN. [Concomitant]
     Active Substance: ACETAMINOPHEN
     Indication: PREMEDICATION
     Route: 048
     Dates: start: 20110614
  4. METHOTREXATE. [Suspect]
     Active Substance: METHOTREXATE
     Indication: PRODUCT USED FOR UNKNOWN INDICATION
     Dosage: DISCONTINUED APR/MAY-2013
     Route: 065
     Dates: end: 2013
  5. SULFASALAZINE. [Concomitant]
     Active Substance: SULFASALAZINE
  6. METHYLPREDNISOLONE. [Concomitant]
     Active Substance: METHYLPREDNISOLONE
     Indication: PREMEDICATION
     Route: 042
     Dates: start: 20110614
  7. RITUXAN [Suspect]
     Active Substance: RITUXIMAB
     Indication: RHEUMATOID ARTHRITIS
     Dosage: LAST RITUXAN INFUSION RECEIVED ON 18/DEC/2017
     Route: 042
     Dates: start: 20110614

REACTIONS (3)
  - Liver disorder [Unknown]
  - Weight increased [Not Recovered/Not Resolved]
  - Drug ineffective [Unknown]
